FAERS Safety Report 8758546 (Version 1)
Quarter: 2012Q4

REPORT INFORMATION
  Report Type: 
  Country: US (occurrence: US)
  Receive Date: 20120829
  Receipt Date: 20120829
  Transmission Date: 20130627
  Serious: No
  Sender: FDA-Public Use
  Company Number: US-GLAXOSMITHKLINE-A0947205A

PATIENT
  Sex: Female

DRUGS (2)
  1. ACYCLOVIR [Suspect]
     Indication: GENITAL HERPES
     Route: 065
     Dates: start: 201105, end: 201109
  2. VALTREX [Suspect]
     Route: 065
     Dates: start: 2003, end: 2008

REACTIONS (2)
  - Genital herpes [Not Recovered/Not Resolved]
  - Drug ineffective [Unknown]
